FAERS Safety Report 5819527-0 (Version None)
Quarter: 2008Q3

REPORT INFORMATION
  Report Type: 
  Country: None (occurrence: None)
  Receive Date: 20080723
  Receipt Date: 20080715
  Transmission Date: 20090109
  Serious: Yes (Disabling, Other)
  Sender: FDA-Public Use
  Company Number: US-BAYER-200211737BWH

PATIENT
  Age: 76 Year
  Sex: Female
  Weight: 86 kg

DRUGS (5)
  1. CIPRO [Suspect]
     Indication: URINARY TRACT INFECTION
     Dosage: TOTAL DAILY DOSE: 500 MG  UNIT DOSE: 250 MG
     Route: 048
     Dates: start: 20010303, end: 20010301
  2. LEVOTHROID [Concomitant]
  3. VIOXX [Concomitant]
  4. NEURONTIN [Concomitant]
  5. PREDNISONE TAB [Concomitant]

REACTIONS (24)
  - ACTIVITIES OF DAILY LIVING IMPAIRED [None]
  - ADVERSE EVENT [None]
  - ARTHRALGIA [None]
  - ARTHROPATHY [None]
  - BLADDER DISCOMFORT [None]
  - BONE PAIN [None]
  - BURNING SENSATION [None]
  - DEPRESSION [None]
  - ERYTHEMA [None]
  - FEELING ABNORMAL [None]
  - FORMICATION [None]
  - GAIT DISTURBANCE [None]
  - HYPOAESTHESIA [None]
  - JOINT DISLOCATION [None]
  - JOINT INJURY [None]
  - LIMB DISCOMFORT [None]
  - NEUROPATHY PERIPHERAL [None]
  - OEDEMA PERIPHERAL [None]
  - PAIN IN EXTREMITY [None]
  - SENSATION OF HEAVINESS [None]
  - SKIN ODOUR ABNORMAL [None]
  - TREMOR [None]
  - VARICOSE VEIN [None]
  - VEIN DISCOLOURATION [None]
